FAERS Safety Report 18860200 (Version 1)
Quarter: 2021Q1

REPORT INFORMATION
  Report Type: Report from Study
  Country: US (occurrence: US)
  Receive Date: 20210208
  Receipt Date: 20210208
  Transmission Date: 20210420
  Serious: Yes (Hospitalization, Other)
  Sender: FDA-Public Use
  Company Number: US-TEVA-2021-US-1870621

PATIENT
  Age: 47 Year
  Sex: Male

DRUGS (1)
  1. CLOZAPINE. [Suspect]
     Active Substance: CLOZAPINE
     Route: 065

REACTIONS (7)
  - Loss of consciousness [Recovered/Resolved]
  - Hypotension [Recovering/Resolving]
  - Gait disturbance [Unknown]
  - Psychotic disorder [Unknown]
  - Agranulocytosis [Unknown]
  - Hallucination, auditory [Unknown]
  - Dizziness [Recovered/Resolved]

NARRATIVE: CASE EVENT DATE: 20210114
